FAERS Safety Report 9450966 (Version 1)
Quarter: 2013Q3

REPORT INFORMATION
  Report Type: Report from Study
  Country: US (occurrence: US)
  Receive Date: 20130809
  Receipt Date: 20130809
  Transmission Date: 20140515
  Serious: Yes (Other)
  Sender: FDA-Public Use
  Company Number: US-B.I. PHARMACEUTICALS,INC./RIDGEFIELD-2013-BI-24196GD

PATIENT
  Sex: 0

DRUGS (2)
  1. PRADAXA [Suspect]
     Route: 048
  2. MULTAQ [Suspect]

REACTIONS (2)
  - Haemorrhage [Unknown]
  - Drug interaction [Unknown]
